FAERS Safety Report 4665702-0 (Version None)
Quarter: 2005Q2

REPORT INFORMATION
  Report Type: 
  Country: None (occurrence: None)
  Receive Date: 20050517
  Receipt Date: 20050503
  Transmission Date: 20051028
  Serious: Yes (Hospitalization, Other)
  Sender: FDA-Public Use
  Company Number: USA021022493

PATIENT
  Age: 53 Year
  Sex: Female
  Weight: 57 kg

DRUGS (6)
  1. FORTEO [Suspect]
     Indication: OSTEOPOROSIS
     Dosage: 20 UG DAY
     Dates: start: 20030301
  2. VANCOCIN HCL [Suspect]
     Indication: CLOSTRIDIAL INFECTION
     Dosage: 125 MG/4 DAY
     Dates: start: 20020301
  3. DURAGESIC (FENTANYL) [Concomitant]
  4. FLAGYL [Concomitant]
  5. HYOSCYAMINE [Concomitant]
  6. ATROPINE W/DIPHENOXYLATE [Concomitant]

REACTIONS (19)
  - CLOSTRIDIAL INFECTION [None]
  - CONDITION AGGRAVATED [None]
  - DIARRHOEA [None]
  - DIFFICULTY IN WALKING [None]
  - DISEASE RECURRENCE [None]
  - EYE SWELLING [None]
  - HEMIPLEGIA [None]
  - INFUSION SITE BRUISING [None]
  - INJECTION SITE ERYTHEMA [None]
  - INJECTION SITE REACTION [None]
  - INJURY [None]
  - MUSCLE ATROPHY [None]
  - PRURITUS [None]
  - RASH [None]
  - ROAD TRAFFIC ACCIDENT [None]
  - SPINAL FRACTURE [None]
  - SWELLING FACE [None]
  - URTICARIA [None]
  - WEIGHT DECREASED [None]
